FAERS Safety Report 20109086 (Version 1)
Quarter: 2021Q4

REPORT INFORMATION
  Report Type: Spontaneous
  Country: PL (occurrence: PL)
  Receive Date: 20211124
  Receipt Date: 20211124
  Transmission Date: 20220303
  Serious: Yes (Other)
  Sender: FDA-Public Use
  Company Number: PL-THERAKIND-2021000199

PATIENT
  Age: 52 Year
  Sex: Female

DRUGS (2)
  1. METHOTREXATE [Suspect]
     Active Substance: METHOTREXATE
     Indication: Renal cell carcinoma
     Dosage: 15 MILLIGRAM, QW
  2. METHOTREXATE [Suspect]
     Active Substance: METHOTREXATE
     Indication: Retroperitoneal fibrosis

REACTIONS (5)
  - Urinary tract obstruction [Unknown]
  - Osteoporosis [Unknown]
  - Transaminases increased [Unknown]
  - Jaundice [Unknown]
  - Product use in unapproved indication [Unknown]
